FAERS Safety Report 9768839 (Version 4)
Quarter: 2014Q1

REPORT INFORMATION
  Report Type: Spontaneous
  Country: JP (occurrence: JP)
  Receive Date: 20131218
  Receipt Date: 20140224
  Transmission Date: 20141002
  Serious: Yes (Hospitalization, Other)
  Sender: FDA-Public Use
  Company Number: JP-BRISTOL-MYERS SQUIBB COMPANY-19923408

PATIENT
  Age: 85 Year
  Sex: Male
  Weight: 59 kg

DRUGS (7)
  1. ERBITUX SOLN FOR INF 5MG/ML [Suspect]
     Indication: HYPOPHARYNGEAL CANCER
     Dosage: 21NOV13:620MG 1 IN 1 W?28NOV13-05DEC13:380MG 1 IN 1 W?3RD INFUSION 380MG :05DEC13
     Route: 041
     Dates: start: 20131121, end: 20131205
  2. MINOMYCIN [Suspect]
     Dosage: CAPSULE
     Route: 048
     Dates: start: 20131203, end: 20131205
  3. WARFARIN SODIUM [Concomitant]
     Indication: ATRIAL FIBRILLATION
     Route: 048
  4. ANTIHISTAMINE NOS [Concomitant]
     Indication: PREMEDICATION
  5. STEROIDS [Concomitant]
     Indication: PREMEDICATION
  6. AMARYL [Concomitant]
     Indication: DIABETES MELLITUS
     Route: 048
  7. TAKEPRON [Concomitant]
     Route: 048
     Dates: end: 20131207

REACTIONS (4)
  - Infusion related reaction [Recovered/Resolved]
  - White blood cell count decreased [Recovered/Resolved]
  - Platelet count decreased [Recovered/Resolved]
  - Rash [Recovered/Resolved]
